FAERS Safety Report 11701144 (Version 2)
Quarter: 2015Q4

REPORT INFORMATION
  Report Type: Spontaneous
  Country: US (occurrence: US)
  Receive Date: 20151105
  Receipt Date: 20151209
  Transmission Date: 20160304
  Serious: Yes (Hospitalization, Other)
  Sender: FDA-Public Use
  Company Number: US-GLAXOSMITHKLINE-US2015156920

PATIENT
  Sex: Male
  Weight: 83.9 kg

DRUGS (1)
  1. BREO ELLIPTA [Suspect]
     Active Substance: FLUTICASONE FUROATE\VILANTEROL TRIFENATATE
     Indication: ASTHMA
     Dosage: UNK UNK, U

REACTIONS (10)
  - Upper respiratory tract infection [Unknown]
  - Drug ineffective [Unknown]
  - Pyrexia [Unknown]
  - Pneumonia [Unknown]
  - Dyspnoea [Unknown]
  - Cough [Unknown]
  - Pleuritic pain [Unknown]
  - Chest pain [Unknown]
  - Lung infiltration [Unknown]
  - Atelectasis [Unknown]
